FAERS Safety Report 8759111 (Version 1)
Quarter: 2012Q4

REPORT INFORMATION
  Report Type: 
  Country: SI (occurrence: SI)
  Receive Date: 20120829
  Receipt Date: 20120829
  Transmission Date: 20130627
  Serious: Yes (Life-Threatening, Hospitalization)
  Sender: FDA-Public Use
  Company Number: PHHY2012SI074572

PATIENT
  Age: 23 Year
  Sex: Male
  Weight: 75 kg

DRUGS (3)
  1. LEPONEX [Suspect]
     Dosage: 250 mg, (100mg in mane, 50 mg at noon and 100 mg in evening)
     Route: 048
     Dates: start: 20050310, end: 20050607
  2. TEGRETOL [Concomitant]
     Dosage: 2 DF, QD
     Dates: start: 20020905, end: 20050607
  3. PARACETAMOL [Concomitant]
     Dates: start: 20050223, end: 20050607

REACTIONS (4)
  - Infection [Recovered/Resolved]
  - Agranulocytosis [Recovered/Resolved]
  - Pyrexia [Recovered/Resolved]
  - Vomiting [Recovered/Resolved]
